FAERS Safety Report 4332895-4 (Version None)
Quarter: 2004Q1

REPORT INFORMATION
  Report Type: 
  Country: None (occurrence: None)
  Receive Date: 20040330
  Receipt Date: 20040319
  Transmission Date: 20041129
  Serious: No
  Sender: FDA-Public Use
  Company Number: 2004UW01007

PATIENT
  Age: 83 Year
  Sex: Male
  Weight: 68.0396 kg

DRUGS (10)
  1. TOPROL-XL [Suspect]
     Indication: ANGINA PECTORIS
  2. TOPROL-XL [Suspect]
     Indication: ANGINA PECTORIS
     Dosage: 12.5 MG DAILY PO
     Route: 048
  3. TOPROL-XL [Suspect]
     Indication: ANGINA PECTORIS
     Dosage: 25 MG DAILY PO
     Route: 048
  4. NORVASC [Concomitant]
  5. NITRO PATCH [Concomitant]
  6. ASPIRIN [Concomitant]
  7. ZELNORM [Concomitant]
  8. CENTRUM [Concomitant]
  9. CALCIUM CITRATE [Concomitant]
  10. CITRUCEL [Concomitant]

REACTIONS (4)
  - EXTRASYSTOLES [None]
  - FEELING JITTERY [None]
  - PRINZMETAL ANGINA [None]
  - TACHYCARDIA [None]
